FAERS Safety Report 14949772 (Version 1)
Quarter: 2018Q2

REPORT INFORMATION
  Report Type: Spontaneous
  Country: FR (occurrence: FR)
  Receive Date: 20180529
  Receipt Date: 20180529
  Transmission Date: 20180711
  Serious: Yes (Other)
  Sender: FDA-Public Use
  Company Number: FR-MERCK KGAA-2048632

PATIENT
  Age: 40 Year
  Sex: Female

DRUGS (1)
  1. NOVOTHYROX [Suspect]
     Active Substance: LEVOTHYROXINE SODIUM
     Indication: HYPOTHYROIDISM
     Dates: start: 20170401

REACTIONS (16)
  - Gastrooesophageal reflux disease [None]
  - Anxiety [None]
  - Nervousness [None]
  - Vertigo [None]
  - Migraine [None]
  - Cough [None]
  - Depression [None]
  - Myalgia [None]
  - Thyroid atrophy [None]
  - Fatigue [None]
  - Chest discomfort [None]
  - Asthenia [None]
  - Pharyngitis [None]
  - Memory impairment [None]
  - Lymphadenopathy [None]
  - Weight increased [None]

NARRATIVE: CASE EVENT DATE: 2017
